FAERS Safety Report 8520833 (Version 2)
Quarter: 2012Q4

REPORT INFORMATION
  Report Type: 
  Country: US (occurrence: US)
  Receive Date: 20120419
  Receipt Date: 20121120
  Transmission Date: 20130627
  Serious: No
  Sender: FDA-Public Use
  Company Number: US-ASTRAZENECA-2011SE41557

PATIENT
  Age: 45 Year
  Sex: Female
  Weight: 73.5 kg

DRUGS (19)
  1. NEXIUM [Suspect]
     Indication: GASTROOESOPHAGEAL REFLUX DISEASE
     Route: 048
     Dates: start: 2006, end: 2010
  2. NEXIUM [Suspect]
     Indication: GASTROOESOPHAGEAL REFLUX DISEASE
     Route: 048
  3. RANITIDINE [Concomitant]
     Dates: start: 2009
  4. NORCO [Concomitant]
     Indication: PAIN
  5. AVINZA [Concomitant]
     Indication: PAIN
  6. SEROQUEL [Concomitant]
     Indication: DEPRESSION
  7. OXYCODONE [Concomitant]
     Indication: PAIN
  8. WELLBUTRIN [Concomitant]
     Indication: DEPRESSION
  9. LAMICTAL [Concomitant]
     Indication: DEPRESSION
  10. DEPO-PROVERA [Concomitant]
     Indication: CONTRACEPTION
  11. LYRICA [Concomitant]
     Indication: PAIN
  12. KLONIPIN [Concomitant]
     Indication: INSOMNIA
  13. KLONIPIN [Concomitant]
     Indication: DEPRESSION
  14. KLONIPIN [Concomitant]
     Indication: ANXIETY
  15. XANAX [Concomitant]
     Indication: INSOMNIA
  16. XANAX [Concomitant]
     Indication: ANXIETY
  17. ENALOPRIL [Concomitant]
  18. LEVOTHYROXINE [Concomitant]
  19. HYDROCHLOROTHIAZIDE [Concomitant]

REACTIONS (5)
  - Bone density decreased [Unknown]
  - Tibia fracture [Unknown]
  - Fibula fracture [Unknown]
  - Muscle spasms [Unknown]
  - Fall [Unknown]
